FAERS Safety Report 20370129 (Version 1)
Quarter: 2022Q1

REPORT INFORMATION
  Report Type: Spontaneous
  Country: US (occurrence: US)
  Receive Date: 20220124
  Receipt Date: 20220124
  Transmission Date: 20220423
  Serious: Yes (Other)
  Sender: FDA-Public Use
  Company Number: US-JNJFOC-20220135919

PATIENT

DRUGS (1)
  1. IMBRUVICA [Interacting]
     Active Substance: IBRUTINIB
     Indication: Waldenstrom^s macroglobulinaemia
     Route: 048

REACTIONS (31)
  - Pemphigoid [Unknown]
  - Arrhythmia [Unknown]
  - Haemorrhage [Unknown]
  - Renal impairment [Unknown]
  - Cytopenia [Unknown]
  - Nail disorder [Unknown]
  - Dry mouth [Unknown]
  - Lip swelling [Unknown]
  - Hair disorder [Unknown]
  - Hepatic function abnormal [Unknown]
  - Skin disorder [Unknown]
  - Emotional disorder [Unknown]
  - Cognitive disorder [Unknown]
  - Drug interaction [Unknown]
  - Myalgia [Unknown]
  - Pneumonitis [Unknown]
  - Arthralgia [Unknown]
  - Muscle spasms [Unknown]
  - Hypertension [Unknown]
  - Palpitations [Unknown]
  - Diarrhoea [Unknown]
  - Nausea [Unknown]
  - Gastrooesophageal reflux disease [Unknown]
  - Mouth ulceration [Unknown]
  - Infection [Unknown]
  - Fatigue [Unknown]
  - Dry eye [Unknown]
  - Vision blurred [Unknown]
  - Dizziness [Unknown]
  - Oedema [Not Recovered/Not Resolved]
  - Contusion [Unknown]
